FAERS Safety Report 15360485 (Version 4)
Quarter: 2022Q1

REPORT INFORMATION
  Report Type: Spontaneous
  Country: PL (occurrence: PL)
  Receive Date: 20180907
  Receipt Date: 20220315
  Transmission Date: 20220423
  Serious: Yes (Other)
  Sender: FDA-Public Use
  Company Number: None

PATIENT
  Age: 34 Year
  Sex: Female

DRUGS (44)
  1. ARIPIPRAZOLE [Suspect]
     Active Substance: ARIPIPRAZOLE
     Indication: Schizophrenia
     Dosage: 15 MILLIGRAM, ONCE A DAY
     Route: 065
     Dates: start: 20110311
  2. ARIPIPRAZOLE [Suspect]
     Active Substance: ARIPIPRAZOLE
     Dosage: 7.5 MILLIGRAM, ONCE A DAY
     Route: 065
     Dates: start: 20110722
  3. ARIPIPRAZOLE [Suspect]
     Active Substance: ARIPIPRAZOLE
     Dosage: 15 MILLIGRAM, TWO TIMES A DAY
     Route: 065
     Dates: start: 20150407
  4. ARIPIPRAZOLE [Suspect]
     Active Substance: ARIPIPRAZOLE
     Dosage: 7.5 MILLIGRAM, TWO TIMES A DAY
     Route: 065
     Dates: start: 20150602
  5. ARIPIPRAZOLE [Suspect]
     Active Substance: ARIPIPRAZOLE
     Dosage: 30 MILLIGRAM, ONCE A DAY
     Route: 065
     Dates: start: 20160212
  6. OLANZAPINE [Interacting]
     Active Substance: OLANZAPINE
     Indication: Schizophrenia
     Dosage: UNK
     Route: 065
  7. OLANZAPINE [Interacting]
     Active Substance: OLANZAPINE
     Indication: Schizophrenia
  8. FLUOXETINE [Interacting]
     Active Substance: FLUOXETINE HYDROCHLORIDE
     Indication: Schizophrenia
     Dosage: 60 MILLIGRAM, ONCE A DAY
     Route: 065
  9. FLUOXETINE [Interacting]
     Active Substance: FLUOXETINE HYDROCHLORIDE
     Indication: Schizophrenia
  10. QUETIAPINE [Suspect]
     Active Substance: QUETIAPINE
     Indication: Schizophrenia
     Dosage: UNK
     Route: 065
  11. SERTRALINE [Interacting]
     Active Substance: SERTRALINE HYDROCHLORIDE
     Indication: Schizophrenia
     Dosage: 100 MILLIGRAM, ONCE A DAY STARTED AT UNKNOWN DOSE WITH ARIPIPRAZOLE
     Route: 065
     Dates: start: 20150417
  12. SERTRALINE [Interacting]
     Active Substance: SERTRALINE HYDROCHLORIDE
     Indication: Schizophrenia
     Dosage: 50 MILLIGRAM, ONCE A DAY
     Route: 065
     Dates: start: 20110426
  13. SERTRALINE [Interacting]
     Active Substance: SERTRALINE HYDROCHLORIDE
     Dosage: 50 MILLIGRAM, ONCE A DAY
     Route: 065
     Dates: start: 20150602
  14. SERTRALINE [Interacting]
     Active Substance: SERTRALINE HYDROCHLORIDE
     Dosage: 100 MILLIGRAM, ONCE A DAY
     Route: 065
     Dates: start: 20150407
  15. VENLAFAXINE [Interacting]
     Active Substance: VENLAFAXINE HYDROCHLORIDE
     Indication: Schizophrenia
     Dosage: UNK
     Route: 065
  16. VENLAFAXINE [Interacting]
     Active Substance: VENLAFAXINE HYDROCHLORIDE
     Indication: Schizophrenia
  17. ABILIFY [Suspect]
     Active Substance: ARIPIPRAZOLE
     Indication: Schizophrenia
     Dosage: 7.5 MILLIGRAM, TWO TIMES A DAY
     Route: 065
  18. ABILIFY [Suspect]
     Active Substance: ARIPIPRAZOLE
     Indication: Schizophrenia
     Dosage: 7.5 MILLIGRAM, ONCE A DAY
     Route: 065
  19. ABILIFY [Suspect]
     Active Substance: ARIPIPRAZOLE
     Dosage: 15 MILLIGRAM, TWO TIMES A DAY
     Route: 065
     Dates: start: 20150407
  20. ABILIFY [Suspect]
     Active Substance: ARIPIPRAZOLE
     Dosage: 30 MILLIGRAM, ONCE A DAY
     Route: 065
  21. ABILIFY [Suspect]
     Active Substance: ARIPIPRAZOLE
     Dosage: 30 MILLIGRAM, ONCE A DAY
     Route: 065
     Dates: start: 20160212
  22. ABILIFY [Suspect]
     Active Substance: ARIPIPRAZOLE
     Dosage: 7.5 MILLIGRAM, TWO TIMES A DAY
     Route: 065
     Dates: start: 20110722
  23. ABILIFY [Suspect]
     Active Substance: ARIPIPRAZOLE
     Dosage: 15 MG, QD (2X7.5 MG)
     Route: 065
     Dates: start: 20110311
  24. ABILIFY [Suspect]
     Active Substance: ARIPIPRAZOLE
     Dosage: 7.5 MILLIGRAM
     Route: 065
     Dates: start: 20150602
  25. ABILIFY [Suspect]
     Active Substance: ARIPIPRAZOLE
     Dosage: 7.5 MILLIGRAM, ONCE A DAY
     Route: 065
     Dates: start: 20110722
  26. ABILIFY [Suspect]
     Active Substance: ARIPIPRAZOLE
     Dosage: 15 MILLIGRAM, TWO TIMES A DAY
     Route: 065
     Dates: start: 20150407
  27. RISPERIDONE [Suspect]
     Active Substance: RISPERIDONE
     Indication: Schizophrenia
     Dosage: UNK
     Route: 065
  28. RISPERIDONE [Suspect]
     Active Substance: RISPERIDONE
     Indication: Schizophrenia
  29. CLORAZEPATE DIPOTASSIUM [Suspect]
     Active Substance: CLORAZEPATE DIPOTASSIUM
     Indication: Schizophrenia
     Dosage: 10 MILLIGRAM, ONCE A DAY
     Route: 065
  30. CLOMIPRAMINE [Suspect]
     Active Substance: CLOMIPRAMINE
     Indication: Schizophrenia
     Dosage: UNK
     Route: 016
  31. CLOMIPRAMINE [Suspect]
     Active Substance: CLOMIPRAMINE
     Indication: Schizophrenia
  32. HALOPERIDOL [Suspect]
     Active Substance: HALOPERIDOL
     Indication: Schizophrenia
     Dosage: UNK
     Route: 065
  33. HALOPERIDOL [Suspect]
     Active Substance: HALOPERIDOL
     Indication: Schizophrenia
  34. OXAZEPAM [Suspect]
     Active Substance: OXAZEPAM
     Indication: Schizophrenia
     Dosage: UNK
     Route: 065
  35. OXAZEPAM [Suspect]
     Active Substance: OXAZEPAM
     Indication: Schizophrenia
  36. PERAZINE [Suspect]
     Active Substance: PERAZINE
     Indication: Schizophrenia
     Dosage: 300 MILLIGRAM, ONCE A DAY
     Route: 065
  37. PERAZINE [Suspect]
     Active Substance: PERAZINE
     Indication: Schizophrenia
  38. TIMONACIC [Suspect]
     Active Substance: TIMONACIC
     Indication: Schizophrenia
     Dosage: UNK
     Route: 065
  39. TIMONACIC [Suspect]
     Active Substance: TIMONACIC
     Indication: Schizophrenia
  40. DIAZEPAM [Concomitant]
     Active Substance: DIAZEPAM
     Indication: Schizophrenia
     Dosage: UNK
     Route: 065
  41. DIAZEPAM [Concomitant]
     Active Substance: DIAZEPAM
     Indication: Schizophrenia
  42. SERTRALINE [Concomitant]
     Active Substance: SERTRALINE HYDROCHLORIDE
     Indication: Schizophrenia
     Dosage: 50 MILLIGRAM
     Route: 065
     Dates: start: 20110426
  43. SERTRALINE [Concomitant]
     Active Substance: SERTRALINE HYDROCHLORIDE
     Indication: Obsessive thoughts
     Dosage: 100 MILLIGRAM, ONCE A DAY
     Route: 065
     Dates: start: 20150404
  44. SERTRALINE [Concomitant]
     Active Substance: SERTRALINE HYDROCHLORIDE
     Indication: Depressed mood
     Dosage: 50 MILLIGRAM, ONCE A DAY
     Route: 065
     Dates: start: 20150602

REACTIONS (10)
  - Psychotic symptom [Recovered/Resolved]
  - Anxiety [Unknown]
  - Maternal exposure during pregnancy [Recovered/Resolved]
  - Suppressed lactation [Recovered/Resolved]
  - Live birth [Unknown]
  - Drug interaction [Unknown]
  - Product use issue [Unknown]
  - Prescribed underdose [Unknown]
  - Inappropriate schedule of product administration [Unknown]
  - Drug ineffective [Unknown]

NARRATIVE: CASE EVENT DATE: 20160125
